FAERS Safety Report 9131339 (Version 2)
Quarter: 2013Q2

REPORT INFORMATION
  Report Type: Report from Study
  Country: US (occurrence: US)
  Receive Date: 20130301
  Receipt Date: 20130507
  Transmission Date: 20140414
  Serious: Yes (Death, Hospitalization, Other)
  Sender: FDA-Public Use
  Company Number: US-ASTELLAS-2013US002126

PATIENT
  Sex: Female

DRUGS (1)
  1. ERLOTINIB TABLET [Suspect]
     Indication: LUNG NEOPLASM MALIGNANT
     Dosage: UNK
     Route: 065

REACTIONS (5)
  - Death [Fatal]
  - Aphasia [None]
  - Hypoacusis [Unknown]
  - Pneumonia [Unknown]
  - Dyspnoea [Unknown]
